FAERS Safety Report 6422487-5 (Version None)
Quarter: 2009Q4

REPORT INFORMATION
  Report Type: 
  Country: None (occurrence: None)
  Receive Date: 20091030
  Receipt Date: 20091022
  Transmission Date: 20100525
  Serious: Yes (Hospitalization, Other)
  Sender: FDA-Public Use
  Company Number: US-MERCK-0909USA02899

PATIENT
  Age: 83 Year
  Sex: Female
  Weight: 58 kg

DRUGS (22)
  1. DECADRON [Suspect]
     Route: 048
     Dates: end: 20090101
  2. DECADRON [Suspect]
     Route: 048
     Dates: start: 20090107
  3. DECADRON [Suspect]
     Route: 048
     Dates: start: 20090810
  4. REVLIMID [Suspect]
     Indication: MULTIPLE MYELOMA
     Route: 048
     Dates: start: 20081201, end: 20090101
  5. REVLIMID [Suspect]
     Route: 048
     Dates: start: 20090810
  6. REVLIMID [Suspect]
     Route: 048
     Dates: start: 20090107, end: 20090807
  7. ARICEPT [Concomitant]
     Route: 065
  8. ZANTAC [Concomitant]
     Route: 065
     Dates: end: 20090101
  9. FOLIC ACID [Concomitant]
     Route: 065
  10. BENADRYL [Concomitant]
     Route: 048
  11. HYDROCHLOROTHIAZIDE AND TRIAMTERENE [Concomitant]
     Route: 065
  12. GABAPENTIN [Concomitant]
     Route: 065
  13. FORTEO [Concomitant]
     Route: 065
  14. BONIVA [Concomitant]
     Route: 065
  15. HYDROCODONE [Concomitant]
     Route: 065
  16. LIDODERM [Concomitant]
     Route: 061
  17. METOPROLOL [Concomitant]
     Route: 065
  18. MARINOL [Concomitant]
     Indication: NAUSEA
     Route: 065
  19. ARANESP [Concomitant]
     Indication: HAEMOGLOBIN DECREASED
     Route: 058
     Dates: start: 20090506, end: 20090506
  20. ARANESP [Concomitant]
     Route: 058
     Dates: start: 20090720, end: 20090720
  21. BLOOD CELLS, RED [Concomitant]
     Route: 042
     Dates: start: 20090720, end: 20090720
  22. DYAZIDE [Concomitant]
     Indication: OEDEMA
     Route: 065
     Dates: start: 20090101

REACTIONS (11)
  - ASTHENIA [None]
  - CONFUSIONAL STATE [None]
  - DIZZINESS [None]
  - FATIGUE [None]
  - HEADACHE [None]
  - HERPES ZOSTER [None]
  - OEDEMA PERIPHERAL [None]
  - PANCYTOPENIA [None]
  - RED BLOOD CELL COUNT DECREASED [None]
  - STRESS [None]
  - WHITE BLOOD CELL COUNT DECREASED [None]
